FAERS Safety Report 4990843-8 (Version None)
Quarter: 2006Q2

REPORT INFORMATION
  Report Type: 
  Country: None (occurrence: None)
  Receive Date: 20060428
  Receipt Date: 20060420
  Transmission Date: 20061013
  Serious: Yes (Disabling, Other)
  Sender: FDA-Public Use
  Company Number: GXKR2006IN02239

PATIENT
  Age: 50 Year
  Sex: Male

DRUGS (2)
  1. MEFLOQUINE [Suspect]
     Indication: MALARIA
     Dosage: SEE IMAGE
     Route: 048
  2. CHLOROQUINE PHOSPHATE [Concomitant]

REACTIONS (8)
  - ABASIA [None]
  - AREFLEXIA [None]
  - DYSGRAPHIA [None]
  - HYPOKINESIA [None]
  - HYPOTONIA [None]
  - NEUROPATHY PERIPHERAL [None]
  - POLYNEUROPATHY [None]
  - RASH ERYTHEMATOUS [None]
